FAERS Safety Report 12076589 (Version 5)
Quarter: 2019Q2

REPORT INFORMATION
  Report Type: Spontaneous
  Country: US (occurrence: US)
  Receive Date: 20160215
  Receipt Date: 20190424
  Transmission Date: 20190711
  Serious: Yes (Hospitalization, Other)
  Sender: FDA-Public Use
  Company Number: PHEH2016US003314

PATIENT
  Age: 63 Year
  Sex: Female
  Weight: 70.31 kg

DRUGS (7)
  1. VIVELLE-DOT [Suspect]
     Active Substance: ESTRADIOL
     Indication: PRODUCT USED FOR UNKNOWN INDICATION
     Dosage: UNK
     Route: 062
     Dates: start: 2009, end: 2013
  2. CLIMARA [Suspect]
     Active Substance: ESTRADIOL
     Dosage: 0.06 MG, (EVERY THREE DAYS)
     Route: 065
     Dates: start: 200510, end: 2011
  3. CALAN [Concomitant]
     Active Substance: VERAPAMIL HYDROCHLORIDE
     Indication: BLOOD PRESSURE MEASUREMENT
     Dosage: 80 MG, TID
     Route: 065
     Dates: start: 1989
  4. CLIMARA [Suspect]
     Active Substance: ESTRADIOL
     Indication: HYSTERECTOMY
     Dosage: 0.05 OT, (EVERY THREE DAYS)
     Route: 065
     Dates: start: 2005, end: 2009
  5. ALORA [Suspect]
     Active Substance: ESTRADIOL
     Indication: HYSTERECTOMY
     Dosage: 0.06 DF, Q72H
     Route: 065
     Dates: start: 2013, end: 201603
  6. FERROUS SULFATE. [Concomitant]
     Active Substance: FERROUS SULFATE
     Indication: PRODUCT USED FOR UNKNOWN INDICATION
     Dosage: 325 MG, BID
     Route: 065
  7. QVAR [Concomitant]
     Active Substance: BECLOMETHASONE DIPROPIONATE
     Indication: ASTHMA
     Dosage: 2 PUFFS DAILY
     Route: 065

REACTIONS (18)
  - Haematocrit decreased [Recovering/Resolving]
  - Intraductal proliferative breast lesion [Not Recovered/Not Resolved]
  - Vaginal haemorrhage [Recovered/Resolved]
  - Pain [Unknown]
  - Tooth fracture [Unknown]
  - Tooth loss [Unknown]
  - Vascular rupture [Recovered/Resolved]
  - Discomfort [Unknown]
  - Nausea [Unknown]
  - Weight decreased [Not Recovered/Not Resolved]
  - Madarosis [Unknown]
  - Malaise [Not Recovered/Not Resolved]
  - Lymphadenopathy [Not Recovered/Not Resolved]
  - Vomiting [Unknown]
  - Alopecia [Unknown]
  - Haemoglobin decreased [Recovering/Resolving]
  - White blood cell count decreased [Recovering/Resolving]
  - Mastication disorder [Unknown]

NARRATIVE: CASE EVENT DATE: 2013
